FAERS Safety Report 14418771 (Version 1)
Quarter: 2018Q1

REPORT INFORMATION
  Report Type: Spontaneous
  Country: US (occurrence: US)
  Receive Date: 20180122
  Receipt Date: 20180122
  Transmission Date: 20180509
  Serious: No
  Sender: FDA-Public Use
  Company Number: US-TEVA-735251ACC

PATIENT
  Sex: Female

DRUGS (1)
  1. METFORMIN HYDROCHLORIDE ER 1000 MG [Suspect]
     Active Substance: METFORMIN HYDROCHLORIDE

REACTIONS (3)
  - Odynophagia [Unknown]
  - Product size issue [Unknown]
  - Foreign body in respiratory tract [Unknown]
